FAERS Safety Report 21439883 (Version 1)
Quarter: 2022Q4

REPORT INFORMATION
  Report Type: Spontaneous
  Country: US (occurrence: None)
  Receive Date: 20221011
  Receipt Date: 20221011
  Transmission Date: 20230113
  Serious: No
  Sender: FDA-Public Use
  Company Number: 2022A337055

PATIENT
  Sex: Female

DRUGS (2)
  1. LOKELMA [Suspect]
     Active Substance: SODIUM ZIRCONIUM CYCLOSILICATE
     Dosage: UNKNOWN DOSAGE IN UNKNOWN FREQUENCY
     Route: 065
     Dates: start: 202209
  2. SODIUM BICARBONATE [Suspect]
     Active Substance: SODIUM BICARBONATE
     Dosage: UNKNOWN DOSAGE IN UNKNOWN FREQUENCY
     Route: 065
     Dates: start: 202209

REACTIONS (3)
  - Fatigue [Unknown]
  - Listless [Unknown]
  - Performance status decreased [Unknown]
